FAERS Safety Report 15359104 (Version 3)
Quarter: 2018Q4

REPORT INFORMATION
  Report Type: Report from Study
  Country: US (occurrence: US)
  Receive Date: 20180906
  Receipt Date: 20181215
  Transmission Date: 20190204
  Serious: No
  Sender: FDA-Public Use
  Company Number: PHEH2018US036578

PATIENT
  Age: 53 Year
  Sex: Female
  Weight: 58.97 kg

DRUGS (1)
  1. GILENYA [Suspect]
     Active Substance: FINGOLIMOD HYDROCHLORIDE
     Indication: MULTIPLE SCLEROSIS
     Dosage: 0.5 MG, QD
     Route: 048
     Dates: start: 20180829

REACTIONS (2)
  - Neutrophil count decreased [Unknown]
  - Heart rate decreased [Recovered/Resolved]

NARRATIVE: CASE EVENT DATE: 20180829
